FAERS Safety Report 8990918 (Version 6)
Quarter: 2013Q3

REPORT INFORMATION
  Report Type: Report from Study
  Country: CA (occurrence: CA)
  Receive Date: 20121231
  Receipt Date: 20130904
  Transmission Date: 20140515
  Serious: Yes (Other)
  Sender: FDA-Public Use
  Company Number: PHHY2012CA121224

PATIENT
  Age: 62 Year
  Sex: Male

DRUGS (7)
  1. TASIGNA [Suspect]
     Indication: CHRONIC MYELOID LEUKAEMIA
     Dosage: 400 MG, BID
     Route: 048
     Dates: start: 200903, end: 201111
  2. TASIGNA [Suspect]
     Dosage: 200 MG, QD
     Route: 048
  3. TASIGNA [Suspect]
     Dosage: 200 MG, BID
     Route: 048
     Dates: end: 201211
  4. TASIGNA [Suspect]
     Dosage: 200 MG, BID
     Route: 048
     Dates: start: 201302, end: 201308
  5. ASA [Concomitant]
  6. CELEXA [Concomitant]
     Dosage: 20 MG
  7. MAGNESIUM [Concomitant]
     Indication: EXTRASYSTOLES

REACTIONS (13)
  - Palpitations [Unknown]
  - Arrhythmia [Unknown]
  - Extrasystoles [Unknown]
  - Angina pectoris [Unknown]
  - Haemorrhoids [Recovering/Resolving]
  - Hyperchlorhydria [Recovering/Resolving]
  - Gastrointestinal disorder [Recovering/Resolving]
  - Anorectal disorder [Recovering/Resolving]
  - Basophil count decreased [Unknown]
  - Asthenia [Unknown]
  - Haemoglobin decreased [Unknown]
  - Constipation [Recovering/Resolving]
  - Mouth ulceration [Recovering/Resolving]
